FAERS Safety Report 21403459 (Version 1)
Quarter: 2022Q4

REPORT INFORMATION
  Report Type: Spontaneous
  Country: US (occurrence: None)
  Receive Date: 20221001
  Receipt Date: 20221001
  Transmission Date: 20230112
  Serious: Yes (Disabling, Other)
  Sender: FDA-Public Use
  Company Number: None

PATIENT
  Age: 45 Year
  Weight: 65.25 kg

DRUGS (17)
  1. BELBUCA [Suspect]
     Active Substance: BUPRENORPHINE HYDROCHLORIDE
     Indication: Spinal disorder
     Dosage: OTHER QUANTITY : 60 1 SUBLINGUAL FILM;?FREQUENCY : EVERY 12 HOURS;?OTHER ROUTE : PLACED BETWEEN CHEE
     Route: 050
  2. BELBUCA [Suspect]
     Active Substance: BUPRENORPHINE HYDROCHLORIDE
     Indication: Hereditary motor and sensory neuropathy
  3. BELBUCA [Suspect]
     Active Substance: BUPRENORPHINE HYDROCHLORIDE
     Indication: Injury
  4. BELBUCA [Suspect]
     Active Substance: BUPRENORPHINE HYDROCHLORIDE
     Indication: Hereditary motor and sensory neuropathy
  5. BELBUCA [Suspect]
     Active Substance: BUPRENORPHINE HYDROCHLORIDE
     Indication: Injury
  6. BELBUCA [Concomitant]
     Active Substance: BUPRENORPHINE HYDROCHLORIDE
  7. GABAPENTIN [Concomitant]
     Active Substance: GABAPENTIN
  8. TIZANIDINE [Concomitant]
     Active Substance: TIZANIDINE
  9. DICLOFENAC [Concomitant]
     Active Substance: DICLOFENAC
  10. DEVICE [Concomitant]
     Active Substance: DEVICE
  11. forearm crutches [Concomitant]
  12. Ankle-Foot-Orthosis [Concomitant]
  13. transfer equipment [Concomitant]
  14. ALOE [Concomitant]
     Active Substance: ALOE
  15. PROBIOTICS NOS [Concomitant]
     Active Substance: PROBIOTICS NOS
  16. Medical-Marijuana [Concomitant]
  17. Sativa Gummies [Concomitant]

REACTIONS (6)
  - Dental caries [None]
  - Tooth loss [None]
  - Tooth fracture [None]
  - Breakthrough pain [None]
  - Product use complaint [None]
  - Migraine [None]

NARRATIVE: CASE EVENT DATE: 20220925
